FAERS Safety Report 7142110-4 (Version None)
Quarter: 2010Q4

REPORT INFORMATION
  Report Type: 
  Country: None (occurrence: None)
  Receive Date: 20101203
  Receipt Date: 20101203
  Transmission Date: 20110411
  Serious: Yes (Death, Hospitalization, Disabling, Other)
  Sender: FDA-Public Use
  Company Number: None

PATIENT
  Age: 59 Year
  Sex: Female
  Weight: 102.0593 kg

DRUGS (1)
  1. DILANTIN [Suspect]
     Indication: CONVULSION
     Dosage: PO
     Route: 048
     Dates: start: 19911001, end: 20000801

REACTIONS (8)
  - CHEMICAL POISONING [None]
  - DEMENTIA [None]
  - HAEMORRHAGE [None]
  - ISCHAEMIA [None]
  - MANIA [None]
  - PSYCHOTIC BEHAVIOUR [None]
  - TARDIVE DYSKINESIA [None]
  - THERAPEUTIC AGENT TOXICITY [None]
